FAERS Safety Report 20946255 (Version 1)
Quarter: 2022Q2

REPORT INFORMATION
  Report Type: Spontaneous
  Country: CN (occurrence: CN)
  Receive Date: 20220610
  Receipt Date: 20220610
  Transmission Date: 20220721
  Serious: Yes (Other)
  Sender: FDA-Public Use
  Company Number: CN-BAYER-2022A081175

PATIENT
  Age: 76 Year
  Sex: Male
  Weight: 70 kg

DRUGS (1)
  1. AVELOX [Suspect]
     Active Substance: MOXIFLOXACIN HYDROCHLORIDE
     Indication: Pneumonia
     Dosage: 0.4 G, QD
     Route: 045
     Dates: start: 20220602, end: 20220602

REACTIONS (5)
  - Rash macular [Recovering/Resolving]
  - Scrotal dermatitis [Recovering/Resolving]
  - Blood pressure systolic increased [Recovering/Resolving]
  - Product prescribing issue [None]
  - Incorrect route of product administration [None]

NARRATIVE: CASE EVENT DATE: 20220602
